FAERS Safety Report 19220148 (Version 1)
Quarter: 2021Q2

REPORT INFORMATION
  Report Type: Spontaneous
  Country: US (occurrence: US)
  Receive Date: 20210505
  Receipt Date: 20210505
  Transmission Date: 20210717
  Serious: Yes (Hospitalization)
  Sender: FDA-Public Use
  Company Number: US-PFIZER INC-2021476713

PATIENT
  Age: 65 Year
  Sex: Female

DRUGS (1)
  1. XELJANZ XR [Suspect]
     Active Substance: TOFACITINIB CITRATE
     Dosage: 11 MG
     Dates: start: 20210224

REACTIONS (6)
  - Gait disturbance [Unknown]
  - Eating disorder [Unknown]
  - Cystitis [Unknown]
  - Nervous system disorder [Unknown]
  - Dysstasia [Unknown]
  - Nausea [Unknown]
